FAERS Safety Report 5316657-7 (Version None)
Quarter: 2007Q2

REPORT INFORMATION
  Report Type: 
  Country: None (occurrence: None)
  Receive Date: 20070430
  Receipt Date: 20070430
  Transmission Date: 20071010
  Serious: No
  Sender: FDA-Public Use
  Company Number: None

PATIENT
  Age: 54 Year
  Sex: Male
  Weight: 77.1115 kg

DRUGS (5)
  1. NEUPOGEN [Suspect]
     Indication: HEPATITIS C
     Dosage: 300 MCG 3 TIMES A WEEK SQ
     Route: 058
     Dates: start: 20070404, end: 20070425
  2. NEUPOGEN [Suspect]
     Indication: NEUTROPENIA
     Dosage: 300 MCG 3 TIMES A WEEK SQ
     Route: 058
     Dates: start: 20070404, end: 20070425
  3. NEUPOGEN [Suspect]
  4. RIBAVIRIN [Concomitant]
  5. PEG-INTRON [Concomitant]

REACTIONS (1)
  - PHARMACEUTICAL PRODUCT COMPLAINT [None]
